FAERS Safety Report 7878897-2 (Version None)
Quarter: 2011Q4

REPORT INFORMATION
  Report Type: 
  Country: None (occurrence: None)
  Receive Date: 20111025
  Receipt Date: 20110216
  Transmission Date: 20120403
  Serious: Yes (Other)
  Sender: FDA-Public Use
  Company Number: 2011BH003339

PATIENT
  Age: 2 Month
  Sex: Male
  Weight: 4.35 kg

DRUGS (4)
  1. ADVATE [Suspect]
     Indication: SUBGALEAL HAEMATOMA
     Dosage: ONCE;IV ; AS NEEDED;IV
     Route: 042
     Dates: start: 20110114
  2. ADVATE [Suspect]
     Indication: INJURY
     Dosage: ONCE;IV ; AS NEEDED;IV
     Route: 042
     Dates: start: 20110114
  3. ADVATE [Suspect]
     Indication: SUBGALEAL HAEMATOMA
     Dosage: ONCE;IV ; AS NEEDED;IV
     Route: 042
     Dates: start: 20101214, end: 20101214
  4. ADVATE [Suspect]
     Indication: INJURY
     Dosage: ONCE;IV ; AS NEEDED;IV
     Route: 042
     Dates: start: 20101214, end: 20101214

REACTIONS (3)
  - URINARY TRACT INFECTION [None]
  - RESPIRATORY SYNCYTIAL VIRUS INFECTION [None]
  - FACTOR VIII INHIBITION [None]
